FAERS Safety Report 8238261-3 (Version None)
Quarter: 2012Q1

REPORT INFORMATION
  Report Type: 
  Country: None (occurrence: None)
  Receive Date: 20120327
  Receipt Date: 20120319
  Transmission Date: 20120608
  Serious: Yes (Other)
  Sender: FDA-Public Use
  Company Number: JP-JNJFOC-20120209299

PATIENT
  Age: 82 Year
  Sex: Male

DRUGS (4)
  1. RISPERIDONE [Suspect]
     Indication: PSYCHOTIC DISORDER
     Route: 048
  2. SERTRALINE HYDROCHLORIDE [Suspect]
     Indication: PSYCHOTIC DISORDER
     Route: 065
  3. RISPERDAL [Suspect]
     Indication: PSYCHOTIC DISORDER
     Route: 048
  4. TIAPRIDE HYDROCHLORIDE [Suspect]
     Indication: PSYCHOTIC DISORDER
     Route: 065

REACTIONS (3)
  - PNEUMONIA ASPIRATION [None]
  - DYSPHAGIA [None]
  - EATING DISORDER [None]
